FAERS Safety Report 4618025-X (Version None)
Quarter: 2005Q1

REPORT INFORMATION
  Report Type: 
  Country: None (occurrence: None)
  Receive Date: 20050322
  Receipt Date: 20050315
  Transmission Date: 20050727
  Serious: Yes (Hospitalization)
  Sender: FDA-Public Use
  Company Number: 430018K05USA

PATIENT
  Age: 54 Year
  Sex: Female
  Weight: 81.6475 kg

DRUGS (6)
  1. NOVANTRONE [Suspect]
     Indication: MULTIPLE SCLEROSIS
     Dates: start: 20020101, end: 20021218
  2. BETASERON (BETASERON) [Concomitant]
  3. SYNTHROID [Concomitant]
  4. PROZAC [Concomitant]
  5. DETROL [Concomitant]
  6. IMIPRAMINE [Concomitant]

REACTIONS (6)
  - CONDITION AGGRAVATED [None]
  - CYSTITIS [None]
  - IMMUNOSUPPRESSION [None]
  - PARAPARESIS [None]
  - URINARY TRACT INFECTION [None]
  - WHITE BLOOD CELL COUNT DECREASED [None]
